FAERS Safety Report 21546904 (Version 4)
Quarter: 2022Q4

REPORT INFORMATION
  Report Type: Report from Study
  Country: KR (occurrence: KR)
  Receive Date: 20221103
  Receipt Date: 20221220
  Transmission Date: 20230113
  Serious: Yes (Hospitalization, Disabling)
  Sender: FDA-Public Use
  Company Number: KR-JNJFOC-20220802697

PATIENT
  Sex: Male

DRUGS (3)
  1. INVEGA SUSTENNA [Suspect]
     Active Substance: PALIPERIDONE PALMITATE
     Indication: Schizophrenia
     Route: 030
  2. INVEGA SUSTENNA [Suspect]
     Active Substance: PALIPERIDONE PALMITATE
  3. INVEGA SUSTENNA [Suspect]
     Active Substance: PALIPERIDONE PALMITATE

REACTIONS (15)
  - Disability [Unknown]
  - Hospitalisation [Unknown]
  - Delusion [Unknown]
  - Malaise [Unknown]
  - Soliloquy [Recovering/Resolving]
  - Abnormal behaviour [Unknown]
  - Restlessness [Unknown]
  - Incoherent [Unknown]
  - Boredom [Unknown]
  - Headache [Unknown]
  - Impulsive behaviour [Recovering/Resolving]
  - Obesity [Unknown]
  - Visual acuity reduced [Unknown]
  - Constipation [Recovering/Resolving]
  - Abdominal discomfort [Not Recovered/Not Resolved]
